FAERS Safety Report 7551868-1 (Version None)
Quarter: 2011Q2

REPORT INFORMATION
  Report Type: 
  Country: None (occurrence: None)
  Receive Date: 20110616
  Receipt Date: 20110607
  Transmission Date: 20111010
  Serious: Yes (Other)
  Sender: FDA-Public Use
  Company Number: PHHY2011JP51687

PATIENT
  Age: 80 Year
  Sex: Female

DRUGS (2)
  1. LAROXIFENE [Suspect]
     Dosage: 60 MG, UNK
  2. OMEPRAZOLE [Suspect]
     Dosage: 20 MG, UNK

REACTIONS (8)
  - OEDEMA PERIPHERAL [None]
  - PROTEINURIA [None]
  - FATIGUE [None]
  - CARDIAC MURMUR [None]
  - HYPOKALAEMIA [None]
  - AZOTAEMIA [None]
  - ANAEMIA [None]
  - BLOOD BICARBONATE DECREASED [None]
